FAERS Safety Report 9953529 (Version 2)
Quarter: 2014Q2

REPORT INFORMATION
  Report Type: Spontaneous
  Country: IT (occurrence: IT)
  Receive Date: 20140304
  Receipt Date: 20140424
  Transmission Date: 20141212
  Serious: Yes (Hospitalization)
  Sender: FDA-Public Use
  Company Number: IT-MERCK-1402ITA012258

PATIENT
  Age: 13 Year
  Sex: Female

DRUGS (1)
  1. MIRTAZAPINE [Suspect]
     Indication: MEDICATION ERROR
     Dosage: TOOK 3 TABLETS OF 30 MG (90 MG) AS TOTAL ADMINISTRATION
     Route: 048
     Dates: start: 20121009, end: 20121009

REACTIONS (4)
  - Ataxia [Recovered/Resolved]
  - Asthenia [Recovered/Resolved]
  - Malaise [Recovered/Resolved]
  - Medication error [Recovered/Resolved]
